FAERS Safety Report 8196434-2 (Version None)
Quarter: 2012Q1

REPORT INFORMATION
  Report Type: 
  Country: None (occurrence: None)
  Receive Date: 20120309
  Receipt Date: 20120301
  Transmission Date: 20120608
  Serious: Yes (Other)
  Sender: FDA-Public Use
  Company Number: NL-PFIZER INC-2012059991

PATIENT
  Sex: Male

DRUGS (3)
  1. CLARITHROMYCIN [Suspect]
     Dosage: 500 MG, 2X/DAY
     Route: 048
     Dates: start: 20120201, end: 20120228
  2. PANTOPRAZOLE [Suspect]
     Dosage: 40 MG, 2X/DAY
     Route: 048
     Dates: start: 20120201, end: 20120228
  3. AMOXICILLIN TRIHYDRATE [Suspect]
     Dosage: 1000 MG, 2X/DAY
     Route: 048
     Dates: start: 20120201, end: 20120228

REACTIONS (4)
  - LIP SWELLING [None]
  - BLISTER [None]
  - PRURITUS [None]
  - MYALGIA [None]
